FAERS Safety Report 4492759-2 (Version None)
Quarter: 2004Q4

REPORT INFORMATION
  Report Type: 
  Country: None (occurrence: None)
  Receive Date: 20041104
  Receipt Date: 20030604
  Transmission Date: 20050328
  Serious: Yes (Death, Hospitalization, Other)
  Sender: FDA-Public Use
  Company Number: US-AMGEN-KDL037704

PATIENT
  Sex: Female

DRUGS (15)
  1. EPOGEN [Suspect]
     Indication: ANAEMIA OF MALIGNANT DISEASE
     Route: 058
     Dates: start: 20030101
  2. NEURONTIN [Concomitant]
  3. CELEBREX [Concomitant]
  4. TAMOXIFEN [Concomitant]
  5. CHROMAGEN FORTE [Concomitant]
  6. NEUMEGA [Concomitant]
  7. CISPLATIN [Concomitant]
  8. CAMPTOSAR [Concomitant]
  9. ADRIAMYCIN PFS [Concomitant]
  10. VEPESID [Concomitant]
  11. TAXOL [Concomitant]
  12. CARBOPLATIN [Concomitant]
  13. GEMZAR [Concomitant]
  14. NEUPOGEN [Concomitant]
  15. FLUOROURACIL [Concomitant]

REACTIONS (5)
  - BONE MARROW DEPRESSION [None]
  - MALIGNANT NEOPLASM PROGRESSION [None]
  - MULTI-ORGAN FAILURE [None]
  - OVARIAN CANCER [None]
  - THROMBOCYTOPENIA [None]
